FAERS Safety Report 10028306 (Version 2)
Quarter: 2014Q2

REPORT INFORMATION
  Report Type: Spontaneous
  Country: US (occurrence: US)
  Receive Date: 20140321
  Receipt Date: 20140416
  Transmission Date: 20141212
  Serious: Yes (Other)
  Sender: FDA-Public Use
  Company Number: US-PAR PHARMACEUTICAL, INC-2014SCPR008969

PATIENT
  Sex: 0

DRUGS (5)
  1. FENTANYL CITRATE [Suspect]
     Indication: PRODUCT USED FOR UNKNOWN INDICATION
     Dosage: UNK, UNKNOWN
     Route: 065
     Dates: end: 20140306
  2. MORPHINE SULFATE [Suspect]
     Indication: PRODUCT USED FOR UNKNOWN INDICATION
     Dosage: UNK, UNKNOWN
     Route: 065
  3. AVASTIN                            /01555201/ [Suspect]
     Indication: NEOPLASM MALIGNANT
     Dosage: UNK, UNKNOWN, EVERY 3 WEEKS
     Route: 042
  4. XELODA [Suspect]
     Indication: NEOPLASM MALIGNANT
     Dosage: 2 DF, BID,  FOR 14 DAYS THEN 7 DAYS OFF
     Route: 065
  5. ZOFRAN                             /00955301/ [Concomitant]
     Indication: PRODUCT USED FOR UNKNOWN INDICATION
     Dosage: UNK, UNKNOWN
     Route: 065

REACTIONS (7)
  - Renal disorder [Unknown]
  - Condition aggravated [Unknown]
  - Hypertension [Unknown]
  - Abdominal pain [Unknown]
  - Malaise [Unknown]
  - Drug ineffective [Unknown]
  - Product quality issue [Unknown]
